FAERS Safety Report 16922587 (Version 3)
Quarter: 2020Q1

REPORT INFORMATION
  Report Type: Report from Study
  Country: None (occurrence: US)
  Receive Date: 20191016
  Receipt Date: 20200107
  Transmission Date: 20200409
  Serious: Yes (Hospitalization, Other)
  Sender: FDA-Public Use
  Company Number: US-ABBVIE-19K-163-2920072-00

PATIENT
  Sex: Female
  Weight: 99.43 kg

DRUGS (1)
  1. HUMIRA [Suspect]
     Active Substance: ADALIMUMAB
     Indication: PSORIATIC ARTHROPATHY
     Dosage: EVERY OTHER WEDNSDAY
     Route: 058

REACTIONS (7)
  - Urinary retention [Unknown]
  - Gastrointestinal pain [Unknown]
  - Volvulus [Recovering/Resolving]
  - Diverticulitis [Unknown]
  - Gait disturbance [Unknown]
  - Abdominal adhesions [Unknown]
  - Vesical fistula [Unknown]

NARRATIVE: CASE EVENT DATE: 2019
